FAERS Safety Report 5586818-0 (Version None)
Quarter: 2008Q1

REPORT INFORMATION
  Report Type: 
  Country: None (occurrence: None)
  Receive Date: 20080110
  Receipt Date: 20080109
  Transmission Date: 20080703
  Serious: Yes (Other)
  Sender: FDA-Public Use
  Company Number: A0702108A

PATIENT
  Age: 23 Year
  Sex: Female

DRUGS (4)
  1. ALLI [Suspect]
     Route: 048
     Dates: start: 20080101, end: 20080104
  2. PHENOBARBITAL TAB [Suspect]
  3. KEPPRA [Suspect]
  4. LASIX [Concomitant]

REACTIONS (7)
  - AMNESIA [None]
  - CONVULSION [None]
  - DRUG INTERACTION [None]
  - EMOTIONAL DISTRESS [None]
  - LOSS OF CONSCIOUSNESS [None]
  - RECTAL DISCHARGE [None]
  - URINARY INCONTINENCE [None]
